FAERS Safety Report 12631736 (Version 3)
Quarter: 2016Q3

REPORT INFORMATION
  Report Type: Spontaneous
  Country: US (occurrence: US)
  Receive Date: 20160808
  Receipt Date: 20160808
  Transmission Date: 20161109
  Serious: No
  Sender: FDA-Public Use
  Company Number: US-BEH-2016060844

PATIENT
  Age: 58 Year
  Sex: Female
  Weight: 85 kg

DRUGS (36)
  1. HIZENTRA [Suspect]
     Active Substance: HUMAN IMMUNOGLOBULIN G
     Route: 058
  2. VENTOLIN [Concomitant]
     Active Substance: ALBUTEROL SULFATE
  3. RESTORIL [Concomitant]
     Active Substance: TEMAZEPAM
  4. WARFARIN [Concomitant]
     Active Substance: WARFARIN
  5. METHYLPREDNISOLONE. [Concomitant]
     Active Substance: METHYLPREDNISOLONE
  6. HIZENTRA [Suspect]
     Active Substance: HUMAN IMMUNOGLOBULIN G
     Indication: IMMUNODEFICIENCY COMMON VARIABLE
     Route: 058
  7. FENOFIBRIC [Concomitant]
     Active Substance: FENOFIBRIC ACID
  8. GRALISE [Concomitant]
     Active Substance: GABAPENTIN
  9. HIZENTRA [Suspect]
     Active Substance: HUMAN IMMUNOGLOBULIN G
     Route: 058
  10. LIDOCAINE/PRILOCAINE [Concomitant]
     Active Substance: LIDOCAINE\PRILOCAINE
  11. BUMETANIDE. [Concomitant]
     Active Substance: BUMETANIDE
  12. TIZANIDINE. [Concomitant]
     Active Substance: TIZANIDINE
  13. ALBUTEROL. [Concomitant]
     Active Substance: ALBUTEROL
  14. GUAIFENESIN. [Concomitant]
     Active Substance: GUAIFENESIN
  15. HIZENTRA [Suspect]
     Active Substance: HUMAN IMMUNOGLOBULIN G
     Route: 058
  16. EPIPEN [Concomitant]
     Active Substance: EPINEPHRINE
  17. MAXALT [Concomitant]
     Active Substance: RIZATRIPTAN BENZOATE
  18. CRESTOR [Concomitant]
     Active Substance: ROSUVASTATIN CALCIUM
  19. VITAMIN D [Concomitant]
     Active Substance: CHOLECALCIFEROL
  20. PERCOCET [Concomitant]
     Active Substance: ACETAMINOPHEN\OXYCODONE HYDROCHLORIDE
  21. ACETAMINOPHEN. [Concomitant]
     Active Substance: ACETAMINOPHEN
  22. CYMBALTA [Concomitant]
     Active Substance: DULOXETINE HYDROCHLORIDE
  23. DYMISTA [Concomitant]
     Active Substance: AZELASTINE HYDROCHLORIDE\FLUTICASONE PROPIONATE
  24. PATADAY [Concomitant]
     Active Substance: OLOPATADINE HYDROCHLORIDE
  25. ADVAIR HFA [Concomitant]
     Active Substance: FLUTICASONE PROPIONATE\SALMETEROL XINAFOATE
  26. SPIRIVA [Concomitant]
     Active Substance: TIOTROPIUM BROMIDE MONOHYDRATE
  27. ASPIRIN. [Concomitant]
     Active Substance: ASPIRIN
  28. CYPROHEPTADINE. [Concomitant]
     Active Substance: CYPROHEPTADINE
  29. HIZENTRA [Suspect]
     Active Substance: HUMAN IMMUNOGLOBULIN G
     Route: 058
  30. FLUCONAZOLE. [Concomitant]
     Active Substance: FLUCONAZOLE
  31. KEFLEX [Concomitant]
     Active Substance: CEPHALEXIN
  32. LISINOPRIL. [Concomitant]
     Active Substance: LISINOPRIL
  33. DIPHENHYDRAMINE. [Concomitant]
     Active Substance: DIPHENHYDRAMINE
  34. SODIUM CHLORIDE. [Concomitant]
     Active Substance: SODIUM CHLORIDE
  35. PROTONIX [Concomitant]
     Active Substance: PANTOPRAZOLE SODIUM
  36. CLARITIN [Concomitant]
     Active Substance: LORATADINE

REACTIONS (2)
  - Sinusitis [Unknown]
  - Bronchitis [Unknown]

NARRATIVE: CASE EVENT DATE: 20160119
